FAERS Safety Report 6161368 (Version 18)
Quarter: 2013Q1

REPORT INFORMATION
  Report Type: Spontaneous
  Country: US (occurrence: US)
  Receive Date: 20061103
  Receipt Date: 20130128
  Transmission Date: 20140127
  Serious: Yes (Death, Hospitalization, Other)
  Sender: FDA-Public Use
  Company Number: PHEH2006US13340

PATIENT
  Age: 68 Year
  Sex: Female

DRUGS (57)
  1. AREDIA [Suspect]
     Indication: OSTEOPOROSIS
     Dosage: 90 MG, QMO
     Route: 042
     Dates: start: 19990319
  2. AREDIA [Suspect]
     Dosage: 90 MG, QMO
     Dates: start: 199911, end: 20020314
  3. AREDIA [Suspect]
     Dosage: 45 MG, QMO
     Dates: end: 200507
  4. ZOMETA [Suspect]
     Dosage: 4 MG, QMO
     Dates: start: 20020314
  5. CLINDAMYCIN [Concomitant]
     Dosage: 300 MG, TID
  6. TOPROL XL [Concomitant]
  7. AMITRIPTYLINE [Concomitant]
  8. LORTAB [Concomitant]
  9. CALCIUM W/VITAMIN D NOS [Concomitant]
  10. TYLENOL ARTHRITIS [Concomitant]
  11. SENOKOT                                 /USA/ [Concomitant]
  12. ZYPREXA [Concomitant]
  13. KCL [Concomitant]
  14. CLONAZEPAM [Concomitant]
     Dosage: 0.5 MG, TID
  15. DILAUDID [Concomitant]
     Indication: PAIN
  16. PREVACID [Concomitant]
     Dosage: 15 MG, Q3H
  17. PAXIL [Concomitant]
  18. HYDROCHLOROTHIAZIDE [Concomitant]
  19. NEUROTON [Concomitant]
  20. TRAZODONE [Concomitant]
  21. ALBUTEROL [Concomitant]
     Dates: start: 20070216
  22. MORPHINE [Concomitant]
     Route: 062
  23. MORPHINE [Concomitant]
  24. KLONOPIN [Concomitant]
     Dosage: 0.5 MG, TID
     Route: 048
  25. FERROUS SULFATE [Concomitant]
  26. FLONASE [Concomitant]
     Route: 045
  27. POTASSIUM [Concomitant]
  28. NEURONTIN [Concomitant]
     Dosage: 300 MG, BID
     Route: 048
  29. FOSAMAX [Concomitant]
  30. VICODIN [Concomitant]
  31. ASPIRIN ^BAYER^ [Concomitant]
  32. PRILOSEC [Concomitant]
  33. CALCITONIN [Concomitant]
  34. NORCO [Concomitant]
  35. HALCION [Concomitant]
  36. CIPROFLOXACIN [Concomitant]
  37. ELAVIL [Concomitant]
  38. DEXAMETHASONE [Concomitant]
  39. DIPHENHYDRAMINE [Concomitant]
  40. DEPO-MEDROL [Concomitant]
  41. LASIX [Concomitant]
     Dosage: 20 MG, QD
     Route: 048
  42. ENOXAPARIN [Concomitant]
     Dosage: 40 MG
  43. PERCOCET [Concomitant]
     Dosage: 5 MG, PRN
     Route: 048
  44. ZOVIRAX [Concomitant]
     Dosage: 800 MG
     Route: 048
  45. DURAGESIC [Concomitant]
     Dosage: 25 MG, PRN
     Route: 062
  46. ABILIFY [Concomitant]
     Dosage: 5 MG, BID
     Route: 048
  47. ROXANOL [Concomitant]
     Dosage: 5 MG
  48. LISINOPRIL [Concomitant]
  49. LIPITOR                                 /UNK/ [Concomitant]
  50. PROZAC [Concomitant]
  51. ESTROGEN NOS [Concomitant]
  52. CYTOTEC [Concomitant]
  53. AMBIEN [Concomitant]
  54. PRINIVIL [Concomitant]
  55. LIDOCAINE [Concomitant]
  56. PANTOPRAZOLE [Concomitant]
  57. UNASYN [Concomitant]

REACTIONS (93)
  - Death [Fatal]
  - Osteonecrosis of jaw [Unknown]
  - General physical health deterioration [Unknown]
  - Pain [Unknown]
  - Anxiety [Unknown]
  - Decreased interest [Unknown]
  - Impaired healing [Unknown]
  - Bone disorder [Unknown]
  - Abscess jaw [Unknown]
  - Pain in jaw [Unknown]
  - Osteomyelitis [Unknown]
  - Eating disorder [Unknown]
  - Stomatitis [Unknown]
  - Gingival erosion [Unknown]
  - Cellulitis [Unknown]
  - Lymphadenopathy [Unknown]
  - Compression fracture [Unknown]
  - Hypertension [Unknown]
  - Pyelonephritis [Unknown]
  - Dementia [Unknown]
  - Depression [Unknown]
  - Fall [Unknown]
  - Hip fracture [Unknown]
  - Urinary tract infection [Recovered/Resolved]
  - Coronary artery disease [Unknown]
  - Suicidal ideation [Unknown]
  - Duodenal ulcer [Recovered/Resolved]
  - Gastrointestinal haemorrhage [Unknown]
  - Melaena [Unknown]
  - Asthenia [Unknown]
  - Anaemia [Unknown]
  - Haemoglobin decreased [Recovered/Resolved]
  - Weight decreased [Unknown]
  - Azotaemia [Unknown]
  - Drug abuse [Unknown]
  - Fatigue [Unknown]
  - Back pain [Unknown]
  - Cough [Unknown]
  - Gravitational oedema [Unknown]
  - Herpes zoster [Recovered/Resolved]
  - Hyperlipidaemia [Unknown]
  - Aggression [Unknown]
  - Gastrooesophageal reflux disease [Unknown]
  - Osteoporosis [Unknown]
  - Malnutrition [Unknown]
  - Skin disorder [Unknown]
  - Headache [Unknown]
  - Rectal haemorrhage [Unknown]
  - Gingival bleeding [Unknown]
  - Insomnia [Unknown]
  - Muscle spasms [Unknown]
  - Renal failure [Unknown]
  - Hypokalaemia [Unknown]
  - Cerebral infarction [Unknown]
  - Hemiparesis [Unknown]
  - Dysphagia [Unknown]
  - Night sweats [Unknown]
  - Local swelling [Unknown]
  - Joint swelling [Unknown]
  - Dyspnoea [Unknown]
  - Constipation [Unknown]
  - Proctalgia [Unknown]
  - Contusion [Unknown]
  - Aphasia [Unknown]
  - Pain in extremity [Unknown]
  - Arthralgia [Unknown]
  - Tinnitus [Unknown]
  - Oropharyngeal pain [Unknown]
  - Spinal osteoarthritis [Unknown]
  - Intervertebral disc degeneration [Unknown]
  - Deformity [Unknown]
  - Myalgia [Unknown]
  - Hyponatraemia [Unknown]
  - Transient ischaemic attack [Unknown]
  - Hiatus hernia [Unknown]
  - Bronchitis [Unknown]
  - Chest pain [Unknown]
  - Pulmonary congestion [Unknown]
  - Bursitis [Unknown]
  - Epicondylitis [Unknown]
  - Rotator cuff syndrome [Unknown]
  - Restless legs syndrome [Unknown]
  - Hypolipidaemia [Unknown]
  - Spinal column stenosis [Unknown]
  - Arteriosclerosis [Unknown]
  - Atelectasis [Recovered/Resolved]
  - Electrocardiogram QT prolonged [Unknown]
  - Bone erosion [Unknown]
  - Osteorrhagia [Unknown]
  - Oral pain [Unknown]
  - Oral disorder [Unknown]
  - Cardiovascular disorder [Unknown]
  - Arthritis [Unknown]
